FAERS Safety Report 16497631 (Version 1)
Quarter: 2019Q2

REPORT INFORMATION
  Report Type: Report from Study
  Country: FR (occurrence: FR)
  Receive Date: 20190628
  Receipt Date: 20190628
  Transmission Date: 20190711
  Serious: Yes (Hospitalization, Other)
  Sender: FDA-Public Use
  Company Number: FR-BRISTOL-MYERS SQUIBB COMPANY-BMS-2019-061234

PATIENT
  Age: 5 Year
  Sex: Male
  Weight: 30.5 kg

DRUGS (4)
  1. NIVOLUMAB [Suspect]
     Active Substance: NIVOLUMAB
     Indication: PRODUCT USED FOR UNKNOWN INDICATION
     Dosage: 93 UNK
     Route: 042
     Dates: start: 20190531, end: 20190531
  2. NIVOLUMAB [Suspect]
     Active Substance: NIVOLUMAB
     Indication: NEUROBLASTOMA
     Dosage: 91.8 MILLIGRAM
     Route: 042
     Dates: start: 20190516, end: 20190516
  3. CYCLOPHOSPHAMIDE. [Suspect]
     Active Substance: CYCLOPHOSPHAMIDE
     Indication: NEUROBLASTOMA
     Dosage: 31 MILLIGRAM/SQ. METER
     Route: 048
     Dates: start: 20190516, end: 20190531
  4. VINBLASTINE SULFATE. [Suspect]
     Active Substance: VINBLASTINE SULFATE
     Indication: NEUROBLASTOMA
     Dosage: 2 UNK, QWK
     Route: 042
     Dates: start: 20190516, end: 20190531

REACTIONS (6)
  - Tachycardia [Recovered/Resolved]
  - Abdominal pain [Recovered/Resolved]
  - Vomiting [Recovered/Resolved]
  - Pyrexia [Recovered/Resolved]
  - Cytokine release syndrome [Recovered/Resolved]
  - Chills [Recovered/Resolved]

NARRATIVE: CASE EVENT DATE: 20190531
